FAERS Safety Report 6538629-7 (Version None)
Quarter: 2010Q1

REPORT INFORMATION
  Report Type: 
  Country: None (occurrence: None)
  Receive Date: 20100115
  Receipt Date: 20100106
  Transmission Date: 20100710
  Serious: No
  Sender: FDA-Public Use
  Company Number: DE-BIOGENIDEC-2009BI029281

PATIENT
  Age: 24 Year
  Sex: Male
  Weight: 85 kg

DRUGS (3)
  1. TYSABRI [Suspect]
     Indication: RELAPSING-REMITTING MULTIPLE SCLEROSIS
     Route: 042
     Dates: start: 20080915, end: 20090904
  2. TYSABRI [Suspect]
     Route: 042
     Dates: start: 20080915, end: 20090904
  3. TYSABRI [Suspect]
     Route: 042
     Dates: start: 20091214

REACTIONS (3)
  - HEMIPARESIS [None]
  - MULTIPLE SCLEROSIS RELAPSE [None]
  - VISUAL IMPAIRMENT [None]
